FAERS Safety Report 5775727-X (Version None)
Quarter: 2008Q2

REPORT INFORMATION
  Report Type: 
  Country: None (occurrence: None)
  Receive Date: 20080612
  Receipt Date: 20080610
  Transmission Date: 20081010
  Serious: Yes (Hospitalization)
  Sender: FDA-Public Use
  Company Number: GRT 2007-12926

PATIENT
  Age: 35 Year
  Sex: Female
  Weight: 55 kg

DRUGS (5)
  1. LIDOCAINE [Suspect]
     Indication: NEURALGIA
     Dosage: 4 PATCHES A DAY
     Dates: start: 20070525, end: 20070701
  2. PREGABALIN [Suspect]
     Indication: NEURALGIA
     Dosage: 75MG, 2/DAY
     Dates: start: 20070621, end: 20070701
  3. NOVORAPID [Concomitant]
  4. LEVEMIR [Concomitant]
  5. TRAMAL [Concomitant]

REACTIONS (7)
  - ARTHROPOD BITE [None]
  - BORRELIA BURGDORFERI SEROLOGY POSITIVE [None]
  - CHOLANGITIS [None]
  - ESCHERICHIA INFECTION [None]
  - HEADACHE [None]
  - NERVOUS SYSTEM DISORDER [None]
  - POLYNEUROPATHY [None]
